FAERS Safety Report 10488736 (Version 2)
Quarter: 2014Q4

REPORT INFORMATION
  Report Type: Spontaneous
  Country: FR (occurrence: FR)
  Receive Date: 20141002
  Receipt Date: 20141002
  Transmission Date: 20150528
  Serious: Yes (Other)
  Sender: FDA-Public Use
  Company Number: FR-NOVOPROD-415928

PATIENT
  Age: 52 Year
  Sex: Female
  Weight: 74 kg

DRUGS (2)
  1. VICTOZA [Suspect]
     Active Substance: LIRAGLUTIDE
     Indication: PRODUCT USED FOR UNKNOWN INDICATION
     Dosage: 1.2 MG, QD
     Route: 058
     Dates: start: 201312, end: 201406
  2. METFORMINE [Concomitant]
     Active Substance: METFORMIN HYDROCHLORIDE
     Dosage: 2.55 G, QD
     Route: 048
     Dates: start: 201309

REACTIONS (5)
  - Asthenia [Recovered/Resolved]
  - Glycosylated haemoglobin increased [None]
  - Pain [Recovered/Resolved]
  - Fatigue [Recovered/Resolved]
  - Hypophagia [Recovered/Resolved]

NARRATIVE: CASE EVENT DATE: 201401
